FAERS Safety Report 9171732 (Version 2)
Quarter: 2013Q4

REPORT INFORMATION
  Report Type: Spontaneous
  Country: MX (occurrence: None)
  Receive Date: 20130308
  Receipt Date: 20131004
  Transmission Date: 20140711
  Serious: Yes (Death, Hospitalization)
  Sender: FDA-Public Use
  Company Number: ALB-001-13-MX

PATIENT
  Age: 9 Year
  Sex: Female

DRUGS (2)
  1. HUMAN ALBUMIN [Suspect]
     Indication: HYPOALBUMINAEMIA
     Route: 042
     Dates: start: 20130128, end: 20130128
  2. OCTAGAM IMMUNE GLOBULIN (HUMAN) [Suspect]
     Indication: SECONDARY IMMUNODEFICIENCY
     Route: 042
     Dates: start: 20130128, end: 20130128

REACTIONS (4)
  - Pyrexia [None]
  - Septic shock [None]
  - Nosocomial infection [None]
  - Malnutrition [None]
